FAERS Safety Report 14738411 (Version 1)
Quarter: 2018Q2

REPORT INFORMATION
  Report Type: Spontaneous
  Country: US (occurrence: US)
  Receive Date: 20180409
  Receipt Date: 20180409
  Transmission Date: 20180711
  Serious: Yes (Other)
  Sender: FDA-Public Use
  Company Number: US-TEVA-2018-US-878125

PATIENT
  Age: 25 Year
  Sex: Female

DRUGS (1)
  1. COPAXONE [Suspect]
     Active Substance: GLATIRAMER ACETATE
     Indication: RELAPSING-REMITTING MULTIPLE SCLEROSIS
     Dates: start: 201410, end: 201412

REACTIONS (5)
  - Hypersomnia [Unknown]
  - Multiple sclerosis relapse [Unknown]
  - Skin reaction [Unknown]
  - Pain in extremity [Unknown]
  - Gait disturbance [Unknown]
